FAERS Safety Report 5654655-4 (Version None)
Quarter: 2008Q1

REPORT INFORMATION
  Report Type: 
  Country: None (occurrence: None)
  Receive Date: 20080219
  Receipt Date: 20071116
  Transmission Date: 20080703
  Serious: No
  Sender: FDA-Public Use
  Company Number: WAES 0711USA03627

PATIENT
  Age: 60 Year
  Sex: Female

DRUGS (3)
  1. JANUVIA [Suspect]
     Indication: BLOOD GLUCOSE INCREASED
     Dosage: 100MG/DAILY/PO; 50 MG/DAILY/PO
     Route: 048
     Dates: start: 20070101, end: 20070101
  2. JANUVIA [Suspect]
     Indication: BLOOD GLUCOSE INCREASED
     Dosage: 100MG/DAILY/PO; 50 MG/DAILY/PO
     Route: 048
     Dates: start: 20071001, end: 20070101
  3. LISINOPRIL [Concomitant]

REACTIONS (1)
  - ELECTROLYTE IMBALANCE [None]
